FAERS Safety Report 23062579 (Version 2)
Quarter: 2023Q4

REPORT INFORMATION
  Report Type: Spontaneous
  Country: US (occurrence: US)
  Receive Date: 20231013
  Receipt Date: 20231020
  Transmission Date: 20240109
  Serious: Yes (Life-Threatening, Hospitalization, Other)
  Sender: FDA-Public Use
  Company Number: US-drreddys-SPO/USA/23/0179124

PATIENT
  Age: 52 Year
  Sex: Male

DRUGS (1)
  1. HEPARIN SODIUM [Suspect]
     Active Substance: HEPARIN SODIUM
     Indication: Anticoagulant therapy
     Dosage: DRIP
     Dates: start: 2020, end: 2020

REACTIONS (3)
  - Heparin-induced thrombocytopenia [Recovered/Resolved]
  - Peripheral ischaemia [Recovered/Resolved]
  - Dry gangrene [Recovered/Resolved]
